FAERS Safety Report 9267504 (Version 8)
Quarter: 2015Q1

REPORT INFORMATION
  Report Type: Spontaneous
  Country: US (occurrence: US)
  Receive Date: 20130502
  Receipt Date: 20150325
  Transmission Date: 20150721
  Serious: Yes (Hospitalization, Other)
  Sender: FDA-Public Use
  Company Number: US-009507513-1305USA000392

PATIENT
  Sex: Male
  Weight: 82.99 kg

DRUGS (4)
  1. PROPECIA [Suspect]
     Active Substance: FINASTERIDE
     Indication: ANDROGENETIC ALOPECIA
     Dosage: 1 MG, QD
     Route: 048
     Dates: start: 20090306, end: 20120402
  2. FINASTERIDE. [Suspect]
     Active Substance: FINASTERIDE
     Indication: ANDROGENETIC ALOPECIA
     Dosage: QUARTER OF 5 MG PILL/QD
     Route: 048
     Dates: start: 20091124, end: 201011
  3. LEXAPRO [Concomitant]
     Active Substance: ESCITALOPRAM OXALATE
     Indication: DEPRESSION
     Dosage: UNK
     Route: 048
     Dates: start: 2007
  4. LEXAPRO [Concomitant]
     Active Substance: ESCITALOPRAM OXALATE
     Indication: ANXIETY

REACTIONS (44)
  - Lymphadenectomy [Unknown]
  - Sexual dysfunction [Not Recovered/Not Resolved]
  - Prostatic specific antigen increased [Not Recovered/Not Resolved]
  - Ear pain [Unknown]
  - Muscle spasms [Unknown]
  - Benign prostatic hyperplasia [Unknown]
  - Libido decreased [Unknown]
  - Diverticulum [Unknown]
  - Asthenia [Unknown]
  - Epistaxis [Unknown]
  - Anxiety [Not Recovered/Not Resolved]
  - Musculoskeletal pain [Unknown]
  - Pollakiuria [Recovered/Resolved]
  - Dysphagia [Unknown]
  - Odynophagia [Unknown]
  - Headache [Unknown]
  - Drug administration error [Recovered/Resolved]
  - Arteriosclerosis coronary artery [Unknown]
  - Arthralgia [Unknown]
  - Nerve compression [Unknown]
  - Urinary incontinence [Recovered/Resolved]
  - Cystitis [Recovering/Resolving]
  - Hypertension [Unknown]
  - Coronary arterial stent insertion [Unknown]
  - Aortic stent insertion [Unknown]
  - Wrong technique in drug usage process [Recovered/Resolved]
  - Neoplasm prostate [Unknown]
  - Depression [Not Recovered/Not Resolved]
  - Fatigue [Not Recovered/Not Resolved]
  - Proctitis [Recovering/Resolving]
  - Prostate cancer [Unknown]
  - Hyperlipidaemia [Unknown]
  - Aortic aneurysm [Unknown]
  - Erectile dysfunction [Not Recovered/Not Resolved]
  - Dry mouth [Unknown]
  - Diarrhoea [Unknown]
  - Peptic ulcer [Unknown]
  - Acquired phimosis [Recovered/Resolved]
  - Stress urinary incontinence [Recovered/Resolved]
  - Osteoarthritis [Unknown]
  - Nephrolithiasis [Unknown]
  - Dyspnoea [Unknown]
  - Dyspepsia [Unknown]
  - Abdominal pain [Unknown]

NARRATIVE: CASE EVENT DATE: 2009
